FAERS Safety Report 17195659 (Version 2)
Quarter: 2020Q1

REPORT INFORMATION
  Report Type: Spontaneous
  Country: IT (occurrence: IT)
  Receive Date: 20191224
  Receipt Date: 20200107
  Transmission Date: 20200409
  Serious: Yes (Hospitalization, Other)
  Sender: FDA-Public Use
  Company Number: IT-BRISTOL-MYERS SQUIBB COMPANY-BMS-2019-121707

PATIENT
  Age: 60 Year

DRUGS (1)
  1. BARACLUDE [Suspect]
     Active Substance: ENTECAVIR
     Indication: HEPATITIS B
     Route: 065

REACTIONS (6)
  - Rectal haemorrhage [Unknown]
  - Sepsis [Unknown]
  - Peritonitis bacterial [Unknown]
  - Pneumonia [Unknown]
  - Encephalopathy [Unknown]
  - Ascites [Unknown]
